FAERS Safety Report 5630066-2 (Version None)
Quarter: 2008Q1

REPORT INFORMATION
  Report Type: 
  Country: None (occurrence: None)
  Receive Date: 20080218
  Receipt Date: 20080207
  Transmission Date: 20080703
  Serious: Yes (Other)
  Sender: FDA-Public Use
  Company Number: PHFR2008GB00804

PATIENT
  Age: 31 Year
  Sex: Male

DRUGS (3)
  1. CLOZARIL [Suspect]
     Indication: SCHIZOPHRENIA
     Dosage: 125MG MANE, 200MG NOCTE
     Route: 048
     Dates: start: 20070530
  2. VALPROATE SODIUM [Concomitant]
     Dosage: 400 MG, BID
     Route: 065
  3. FLUOXETINE [Concomitant]
     Route: 065

REACTIONS (4)
  - ELECTROCARDIOGRAM QRS COMPLEX ABNORMAL [None]
  - MYOCARDIAL INFARCTION [None]
  - SINUS TACHYCARDIA [None]
  - SOMNOLENCE [None]
